FAERS Safety Report 24371497 (Version 9)
Quarter: 2025Q4

REPORT INFORMATION
  Report Type: Report from Study
  Country: US (occurrence: None)
  Receive Date: 20240927
  Receipt Date: 20251119
  Transmission Date: 20260118
  Serious: Yes (Hospitalization, Other)
  Sender: UCB
  Company Number: US-UCBSA-2024048630

PATIENT
  Age: 49 Year
  Weight: 66 kg

DRUGS (5)
  1. FENFLURAMINE HYDROCHLORIDE [Suspect]
     Active Substance: FENFLURAMINE HYDROCHLORIDE
     Indication: Lennox-Gastaut syndrome
     Dosage: 5.9 MILLILITER, 2X/DAY (BID)
  2. FENFLURAMINE HYDROCHLORIDE [Suspect]
     Active Substance: FENFLURAMINE HYDROCHLORIDE
     Indication: Seizure
     Dosage: 11.8 MG/KG/DAY
  3. FENFLURAMINE HYDROCHLORIDE [Suspect]
     Active Substance: FENFLURAMINE HYDROCHLORIDE
     Dosage: 5.9 MILLILITER, 2X/DAY (BID)
  4. FENFLURAMINE HYDROCHLORIDE [Suspect]
     Active Substance: FENFLURAMINE HYDROCHLORIDE
     Dosage: 5.9 MILLILITER, 2X/DAY (BID)
  5. MIDRODRINE [Concomitant]
     Indication: Orthostatic hypotension
     Dosage: 5.90 MILLIGRAM, 2X/DAY (BID)

REACTIONS (8)
  - Tricuspid valve incompetence [Recovering/Resolving]
  - Hospitalisation [Not Recovered/Not Resolved]
  - Pulmonary arterial hypertension [Not Recovered/Not Resolved]
  - Right atrial enlargement [Not Recovered/Not Resolved]
  - Mitral valve thickening [Not Recovered/Not Resolved]
  - Orthostatic hypotension [Not Recovered/Not Resolved]
  - Heart valve incompetence [Not Recovered/Not Resolved]
  - Physical disability [Unknown]
